FAERS Safety Report 5466764-3 (Version None)
Quarter: 2007Q3

REPORT INFORMATION
  Report Type: 
  Country: None (occurrence: None)
  Receive Date: 20070925
  Receipt Date: 20070911
  Transmission Date: 20080115
  Serious: Yes (Other)
  Sender: FDA-Public Use
  Company Number: SK-ELI_LILLY_AND_COMPANY-SK200707004200

PATIENT
  Age: 1 Day
  Weight: 3.7 kg

DRUGS (3)
  1. ZYPREXA [Suspect]
     Indication: SCHIZOPHRENIA
     Dosage: UNK MG, DAILY (1/D)
     Route: 064
     Dates: start: 20060801, end: 20070520
  2. VENLAFAXINE HCL [Concomitant]
     Indication: DEPRESSIVE SYMPTOM
     Dosage: 225 MG, DAILY (1/D)
     Route: 064
     Dates: start: 20060801, end: 20061120
  3. VENLAFAXINE HCL [Concomitant]
     Dosage: 75 MG, DAILY (1/D)
     Route: 064
     Dates: start: 20061120, end: 20070411

REACTIONS (2)
  - BRACHIAL PLEXUS INJURY [None]
  - DRUG EXPOSURE DURING PREGNANCY [None]
